FAERS Safety Report 15133030 (Version 1)
Quarter: 2018Q3

REPORT INFORMATION
  Report Type: Spontaneous
  Country: US (occurrence: US)
  Receive Date: 20180712
  Receipt Date: 20180712
  Transmission Date: 20181010
  Serious: No
  Sender: FDA-Public Use
  Company Number: US-SUN PHARMACEUTICAL INDUSTRIES LTD-2017US-155491

PATIENT
  Sex: Female

DRUGS (2)
  1. ABSORICA [Suspect]
     Active Substance: ISOTRETINOIN
     Indication: PRODUCT USED FOR UNKNOWN INDICATION
     Dosage: 40 MG, DAILY
     Route: 065
     Dates: start: 2017, end: 2017
  2. ABSORICA [Suspect]
     Active Substance: ISOTRETINOIN
     Indication: PRODUCT USED FOR UNKNOWN INDICATION
     Dosage: 35 MG, DAILY
     Route: 065
     Dates: start: 2017, end: 2017

REACTIONS (5)
  - Chapped lips [Unknown]
  - Dry skin [Unknown]
  - Inappropriate schedule of drug administration [Unknown]
  - Arthralgia [Not Recovered/Not Resolved]
  - Onychoclasis [Unknown]

NARRATIVE: CASE EVENT DATE: 2017
